FAERS Safety Report 5505296-0 (Version None)
Quarter: 2007Q4

REPORT INFORMATION
  Report Type: 
  Country: None (occurrence: None)
  Receive Date: 20071102
  Receipt Date: 20071024
  Transmission Date: 20080405
  Serious: Yes (Hospitalization)
  Sender: FDA-Public Use
  Company Number: FR-ROCHE-527915

PATIENT
  Age: 38 Year
  Sex: Male

DRUGS (6)
  1. APRANAX [Suspect]
     Indication: ANKYLOSING SPONDYLITIS
     Dosage: DOSE REPORTED AS 1 DOSE BID.
     Route: 048
  2. BUTAZOLIDIN [Suspect]
     Indication: ANKYLOSING SPONDYLITIS
     Route: 048
     Dates: start: 19930101
  3. KETOPROFEN [Suspect]
     Indication: ANKYLOSING SPONDYLITIS
     Dosage: DRUG REPORTED AS BIPROFENID.
     Route: 065
     Dates: start: 19930101
  4. KETOPROFEN [Suspect]
     Indication: DRUG USE FOR UNKNOWN INDICATION
     Route: 048
     Dates: start: 19930101
  5. NABUCOX [Concomitant]
  6. PIROXICAM [Concomitant]

REACTIONS (2)
  - ACUTE PULMONARY OEDEMA [None]
  - CONGESTIVE CARDIOMYOPATHY [None]
